FAERS Safety Report 8986231 (Version 1)
Quarter: 2012Q4

REPORT INFORMATION
  Report Type: 
  Country: JP (occurrence: JP)
  Receive Date: 20121227
  Receipt Date: 20121227
  Transmission Date: 20130627
  Serious: Yes (Other)
  Sender: FDA-Public Use
  Company Number: JP-009507513-1212JPN009669

PATIENT
  Sex: Female

DRUGS (1)
  1. MENESIT [Suspect]
     Route: 048

REACTIONS (2)
  - Convulsion [Unknown]
  - Syncope [Unknown]
